FAERS Safety Report 20713188 (Version 1)
Quarter: 2022Q2

REPORT INFORMATION
  Report Type: Spontaneous
  Country: US (occurrence: US)
  Receive Date: 20220415
  Receipt Date: 20220415
  Transmission Date: 20220720
  Serious: Yes (Other)
  Sender: FDA-Public Use
  Company Number: US-SA-SAC20220412001476

PATIENT
  Sex: Female

DRUGS (1)
  1. TAXOTERE [Suspect]
     Active Substance: DOCETAXEL
     Indication: Breast cancer
     Dosage: UNK, Q3W

REACTIONS (6)
  - Dacryostenosis acquired [Unknown]
  - Lacrimation increased [Unknown]
  - Eye irritation [Unknown]
  - Dry eye [Unknown]
  - Eye swelling [Unknown]
  - Loss of personal independence in daily activities [Unknown]
